FAERS Safety Report 17275480 (Version 1)
Quarter: 2020Q1

REPORT INFORMATION
  Report Type: Spontaneous
  Country: US (occurrence: US)
  Receive Date: 20200116
  Receipt Date: 20200116
  Transmission Date: 20200409
  Serious: No
  Sender: FDA-Public Use
  Company Number: US-CELGENEUS-USA-20200103572

PATIENT
  Sex: Female
  Weight: 83.54 kg

DRUGS (1)
  1. REVLIMID [Suspect]
     Active Substance: LENALIDOMIDE
     Indication: PLASMA CELL MYELOMA
     Dosage: 25 MILLIGRAM
     Route: 048
     Dates: start: 20191101

REACTIONS (3)
  - Urine uric acid [Recovered/Resolved]
  - Urethritis noninfective [Recovered/Resolved]
  - Vulvovaginal discomfort [Recovered/Resolved]
